FAERS Safety Report 9403316 (Version 2)
Quarter: 2013Q3

REPORT INFORMATION
  Report Type: Other
  Country: TR (occurrence: TR)
  Receive Date: 20130716
  Receipt Date: 20130725
  Transmission Date: 20140515
  Serious: Yes (Hospitalization)
  Sender: FDA-Public Use
  Company Number: TR-BRISTOL-MYERS SQUIBB COMPANY-19106145

PATIENT
  Age: 20 Year
  Sex: Male

DRUGS (2)
  1. METFORMIN HCL [Suspect]
  2. DICLOFENAC SODIUM [Suspect]
     Dosage: TOOK MANY PILLS

REACTIONS (3)
  - Suicide attempt [Recovered/Resolved]
  - Lactic acidosis [Recovered/Resolved]
  - Intentional overdose [Recovered/Resolved]
